FAERS Safety Report 9469373 (Version 1)
Quarter: 2013Q3

REPORT INFORMATION
  Report Type: Spontaneous
  Country: US (occurrence: US)
  Receive Date: 20130821
  Receipt Date: 20130821
  Transmission Date: 20140515
  Serious: Yes (Disabling)
  Sender: FDA-Public Use
  Company Number: US-MERCK-1308USA006163

PATIENT
  Sex: Female

DRUGS (3)
  1. COZAAR [Suspect]
     Indication: BLOOD PRESSURE
     Route: 048
  2. COREG [Concomitant]
     Indication: BLOOD PRESSURE
     Dosage: UNK
  3. MICARDIS [Concomitant]
     Indication: BLOOD PRESSURE
     Dosage: 40MG IN THE DAY AND 20 MG IN THE NIGHT
     Dates: start: 2013

REACTIONS (11)
  - Impaired work ability [Unknown]
  - Quality of life decreased [Unknown]
  - Lethargy [Unknown]
  - Nausea [Unknown]
  - Depression [Unknown]
  - Impaired driving ability [Unknown]
  - Feeling abnormal [Unknown]
  - Impaired self-care [Unknown]
  - Anxiety [Unknown]
  - Dizziness [Unknown]
  - Drug ineffective [Unknown]
